FAERS Safety Report 16613208 (Version 1)
Quarter: 2019Q3

REPORT INFORMATION
  Report Type: Spontaneous
  Country: US (occurrence: US)
  Receive Date: 20190608
  Receipt Date: 20190608
  Transmission Date: 20191004
  Serious: No
  Sender: FDA-Public Use
  Company Number: None

PATIENT
  Age: 60 Year
  Sex: Female

DRUGS (3)
  1. ZOLPIDEM [Concomitant]
     Active Substance: ZOLPIDEM TARTRATE
  2. BENLYSTA [Suspect]
     Active Substance: BELIMUMAB
     Indication: SYSTEMIC LUPUS ERYTHEMATOSUS
     Dates: start: 20180626
  3. PROLIA [Concomitant]
     Active Substance: DENOSUMAB

REACTIONS (3)
  - Fall [None]
  - Loss of consciousness [None]
  - Blood potassium decreased [None]

NARRATIVE: CASE EVENT DATE: 20190517
